FAERS Safety Report 6418976-X (Version None)
Quarter: 2009Q4

REPORT INFORMATION
  Report Type: 
  Country: None (occurrence: None)
  Receive Date: 20091029
  Receipt Date: 20091020
  Transmission Date: 20100525
  Serious: Yes (Death, Hospitalization)
  Sender: FDA-Public Use
  Company Number: SE-JNJFOC-20091006883

PATIENT
  Sex: Female

DRUGS (10)
  1. IPREN [Suspect]
     Indication: DRUG USE FOR UNKNOWN INDICATION
     Route: 048
  2. COZAAR [Suspect]
     Indication: DRUG USE FOR UNKNOWN INDICATION
     Dosage: 50MG /12.5MG, ONCE DAILY
     Route: 048
  3. SPIRONOLAKTON [Concomitant]
  4. ALLOPURINOL [Concomitant]
  5. ALVEDON [Concomitant]
  6. MIRTAZAPINE [Concomitant]
  7. ZOLPIDEM [Concomitant]
  8. METOPROLOL [Concomitant]
  9. FUROSEMIDE [Concomitant]
  10. METOPROLOL [Concomitant]

REACTIONS (2)
  - INTESTINAL PERFORATION [None]
  - RENAL FAILURE ACUTE [None]
